FAERS Safety Report 18169071 (Version 1)
Quarter: 2020Q3

REPORT INFORMATION
  Report Type: Spontaneous
  Country: ZA (occurrence: ZA)
  Receive Date: 20200818
  Receipt Date: 20200818
  Transmission Date: 20201103
  Serious: Yes (Life-Threatening)
  Sender: FDA-Public Use
  Company Number: ZA-FERRINGPH-2020FE05425

PATIENT
  Age: 65 Year
  Sex: Male

DRUGS (3)
  1. THYROXINE [Concomitant]
     Active Substance: LEVOTHYROXINE
     Indication: HYPOPITUITARISM
     Dosage: UNK
     Route: 048
     Dates: start: 2017
  2. CORTISOL [HYDROCORTISONE] [Concomitant]
     Indication: HYPOPITUITARISM
     Dosage: UNK
     Route: 048
     Dates: start: 2017
  3. DDAVP [Suspect]
     Active Substance: DESMOPRESSIN ACETATE
     Indication: DIABETES INSIPIDUS
     Dosage: 20 UG, DAILY
     Route: 045
     Dates: start: 2017, end: 20200805

REACTIONS (3)
  - Urine output decreased [Recovered/Resolved]
  - Out of specification product use [Unknown]
  - Cerebrovascular accident [Recovered/Resolved with Sequelae]

NARRATIVE: CASE EVENT DATE: 202007
